FAERS Safety Report 10507292 (Version 1)
Quarter: 2014Q4

REPORT INFORMATION
  Report Type: Spontaneous
  Country: US (occurrence: US)
  Receive Date: 20141009
  Receipt Date: 20141009
  Transmission Date: 20150528
  Serious: Yes (Hospitalization)
  Sender: FDA-Public Use
  Company Number: US-SA-2014SA138120

PATIENT
  Age: 12 Month
  Sex: Male

DRUGS (2)
  1. DESMOSPRAY [Suspect]
     Active Substance: DESMOPRESSIN
     Indication: DIABETES INSIPIDUS
     Route: 045
  2. DDAVP [Suspect]
     Active Substance: DESMOPRESSIN ACETATE
     Indication: DIABETES INSIPIDUS
     Dosage: DAILY DOSE AND FREQUENCY-59.147 ML 1X/8 HOURS,DDVAP TABLETS IN 2 OUNCESOF FLUID EVERY 8 HOURS
     Route: 048
     Dates: start: 19981204

REACTIONS (4)
  - Photophobia [None]
  - Fatigue [None]
  - Rash [None]
  - Seizure [Recovered/Resolved]

NARRATIVE: CASE EVENT DATE: 19981204
